FAERS Safety Report 5116908-8 (Version None)
Quarter: 2006Q3

REPORT INFORMATION
  Report Type: 
  Country: None (occurrence: None)
  Receive Date: 20060927
  Receipt Date: 20060927
  Transmission Date: 20061208
  Serious: Yes (Death, Hospitalization)
  Sender: FDA-Public Use
  Company Number: None

PATIENT
  Sex: Male
  Weight: 100 kg

DRUGS (2)
  1. DAUNORUBICIN HCL [Suspect]
     Dosage: 140 MG
     Dates: end: 20051216
  2. VINCRISTINE [Suspect]
     Dosage: 2 MG
     Dates: end: 20051216

REACTIONS (1)
  - INFECTION [None]
